FAERS Safety Report 25877017 (Version 1)
Quarter: 2025Q4

REPORT INFORMATION
  Report Type: Spontaneous
  Country: EU (occurrence: EU)
  Receive Date: 20251003
  Receipt Date: 20251003
  Transmission Date: 20260117
  Serious: Yes (Other)
  Sender: BAYER HEALTHCARE PHARMACEUTICALS INC.
  Company Number: EU-BAYER-2025A127815

PATIENT
  Age: 36 Year
  Sex: Female

DRUGS (10)
  1. KERENDIA [Suspect]
     Active Substance: FINERENONE
     Indication: Type 2 diabetes mellitus
     Dosage: 10 MG, QD
     Dates: start: 202501
  2. KERENDIA [Suspect]
     Active Substance: FINERENONE
     Indication: Chronic kidney disease
     Dosage: 20 MG
  3. EVEROLIMUS [Concomitant]
     Active Substance: EVEROLIMUS
  4. LEVETIRACETAM [Concomitant]
     Active Substance: LEVETIRACETAM
  5. VALPROIC ACID [Concomitant]
     Active Substance: VALPROIC ACID
  6. RAMIPRIL [Concomitant]
     Active Substance: RAMIPRIL
  7. MOXONIDINE [Concomitant]
     Active Substance: MOXONIDINE
  8. FOLIC ACID [Concomitant]
     Active Substance: FOLIC ACID
  9. VITAMIN D [Concomitant]
     Active Substance: VITAMIN D NOS
  10. FAMOTIDINE [Concomitant]
     Active Substance: FAMOTIDINE

REACTIONS (4)
  - Blood pressure systolic increased [Recovering/Resolving]
  - Glomerular filtration rate decreased [None]
  - Blood potassium increased [None]
  - Urine albumin/creatinine ratio increased [None]
